FAERS Safety Report 26129940 (Version 1)
Quarter: 2025Q4

REPORT INFORMATION
  Report Type: Spontaneous
  Country: JP (occurrence: JP)
  Receive Date: 20251208
  Receipt Date: 20251208
  Transmission Date: 20260118
  Serious: Yes (Hospitalization)
  Sender: SANOFI AVENTIS
  Company Number: None

PATIENT
  Age: 73 Year
  Sex: Female
  Weight: 42 kg

DRUGS (7)
  1. ALLOPURINOL [Suspect]
     Active Substance: ALLOPURINOL
     Indication: Hyperuricaemia
     Dosage: UNK
     Route: 048
     Dates: start: 20100428, end: 20100518
  2. ETHAMBUTOL [Suspect]
     Active Substance: ETHAMBUTOL HYDROCHLORIDE
     Indication: Tuberculosis bladder
     Dosage: UNK
     Route: 048
     Dates: start: 20100415, end: 20100518
  3. OMEPRAZOLE [Suspect]
     Active Substance: OMEPRAZOLE
     Dosage: UNK
     Route: 048
     Dates: start: 20100323, end: 20100518
  4. ISONIAZID [Suspect]
     Active Substance: ISONIAZID
     Indication: Tuberculosis bladder
     Dosage: UNK
     Route: 048
     Dates: start: 20100408, end: 20100518
  5. PYRAZINAMIDE [Suspect]
     Active Substance: PYRAZINAMIDE
     Indication: Tuberculosis bladder
     Dosage: UNK
     Route: 048
     Dates: start: 20100408, end: 20100518
  6. RIFADIN [Suspect]
     Active Substance: RIFAMPIN
     Indication: Tuberculosis bladder
     Dosage: UNK
     Route: 048
     Dates: start: 20100408, end: 20100518
  7. PYRIDOXAL [Suspect]
     Active Substance: PYRIDOXAL
     Dosage: UNK
     Dates: start: 20100408, end: 20100518

REACTIONS (2)
  - Drug eruption [Recovering/Resolving]
  - Hyperuricaemia [Recovered/Resolved]

NARRATIVE: CASE EVENT DATE: 20100417
